FAERS Safety Report 7433065-3 (Version None)
Quarter: 2011Q2

REPORT INFORMATION
  Report Type: 
  Country: None (occurrence: None)
  Receive Date: 20110415
  Receipt Date: 20110330
  Transmission Date: 20111010
  Serious: Yes (Other)
  Sender: FDA-Public Use
  Company Number: AUR-APL-2011-01151

PATIENT
  Age: 10 Year
  Sex: Female

DRUGS (2)
  1. CLONAZEPAM [Concomitant]
  2. LAMOTRIGINE [Suspect]
     Indication: GRAND MAL CONVULSION
     Dosage: 25/MG/KG/DAY

REACTIONS (6)
  - NO THERAPEUTIC RESPONSE [None]
  - CEREBELLAR ATROPHY [None]
  - CONVULSION [None]
  - CEREBRAL ATROPHY [None]
  - TOXICITY TO VARIOUS AGENTS [None]
  - OCULOGYRIC CRISIS [None]
